FAERS Safety Report 24227653 (Version 2)
Quarter: 2024Q3

REPORT INFORMATION
  Report Type: Report from Study
  Country: US (occurrence: US)
  Receive Date: 20240820
  Receipt Date: 20240912
  Transmission Date: 20241016
  Serious: Yes (Other)
  Sender: ABBVIE
  Company Number: US-ABBVIE-5883282

PATIENT
  Sex: Female

DRUGS (1)
  1. VENCLEXTA [Suspect]
     Active Substance: VENETOCLAX
     Indication: Acute myeloid leukaemia
     Route: 048
     Dates: start: 20240716

REACTIONS (7)
  - Malaise [Unknown]
  - Fatigue [Unknown]
  - Blood pressure decreased [Unknown]
  - Platelet transfusion [Unknown]
  - Gait disturbance [Unknown]
  - Nasopharyngitis [Unknown]
  - Heart rate abnormal [Unknown]

NARRATIVE: CASE EVENT DATE: 20240101
